FAERS Safety Report 24770349 (Version 1)
Quarter: 2024Q4

REPORT INFORMATION
  Report Type: Spontaneous
  Country: US (occurrence: None)
  Receive Date: 20241220
  Receipt Date: 20241220
  Transmission Date: 20250115
  Serious: Yes (unspecified)
  Sender: Public
  Company Number: None

PATIENT
  Age: 54 Year
  Sex: Female
  Weight: 47.63 kg

DRUGS (3)
  1. OMNIPAQUE [Suspect]
     Active Substance: IOHEXOL
  2. MOMETASONE [Concomitant]
     Active Substance: MOMETASONE
  3. VITAL PROTEINS COLLAGEN PEPTIDES UNSCENTED COW PRODUCT [Concomitant]

REACTIONS (10)
  - Gastrooesophageal reflux disease [None]
  - Hot flush [None]
  - Micturition urgency [None]
  - Headache [None]
  - Face oedema [None]
  - Pyrexia [None]
  - Rash [None]
  - Renal impairment [None]
  - Photopsia [None]
  - Dermatitis [None]

NARRATIVE: CASE EVENT DATE: 20241213
